FAERS Safety Report 14659945 (Version 2)
Quarter: 2018Q2

REPORT INFORMATION
  Report Type: Spontaneous
  Country: US (occurrence: US)
  Receive Date: 20180320
  Receipt Date: 20180422
  Transmission Date: 20180711
  Serious: Yes (Other)
  Sender: FDA-Public Use
  Company Number: US-APOTEX-2018AP007927

PATIENT
  Sex: Female

DRUGS (1)
  1. FENTANYL. [Suspect]
     Active Substance: FENTANYL
     Indication: PAIN MANAGEMENT
     Dosage: UNK
     Route: 062

REACTIONS (5)
  - Loss of consciousness [Unknown]
  - Therapeutic response increased [Unknown]
  - Feeling abnormal [Unknown]
  - Miosis [Unknown]
  - Adverse reaction [Unknown]
